FAERS Safety Report 11180260 (Version 8)
Quarter: 2018Q4

REPORT INFORMATION
  Report Type: Report from Study
  Country: DE (occurrence: DE)
  Receive Date: 20150611
  Receipt Date: 20181026
  Transmission Date: 20190204
  Serious: Yes (Hospitalization, Other)
  Sender: FDA-Public Use
  Company Number: DE-ROCHE-1592562

PATIENT
  Age: 59 Year
  Sex: Male

DRUGS (8)
  1. BUPRENORPHIN [Concomitant]
     Active Substance: BUPRENORPHINE
     Route: 065
  2. ROACTEMRA [Suspect]
     Active Substance: TOCILIZUMAB
     Indication: RHEUMATOID ARTHRITIS
     Dosage: DAILY DOSE: 162 MG MILLGRAM(S) EVERY 4 WEEKS
     Route: 058
  3. ROACTEMRA [Suspect]
     Active Substance: TOCILIZUMAB
     Indication: RHEUMATOID ARTHRITIS
     Route: 042
     Dates: start: 20090101, end: 20140701
  4. ALENDRON BETA [Concomitant]
     Active Substance: ALENDRONATE SODIUM
     Dosage: AS BONE REGENERATION
     Route: 065
  5. SYNTESTAN [Concomitant]
     Active Substance: CLOPREDNOL
     Route: 065
  6. IDEOS [Concomitant]
     Active Substance: CALCIUM CARBONATE\CHOLECALCIFEROL
     Dosage: FOR SOFT TISSUE RHEUMATISM
     Route: 065
  7. SYNTESTAN [Concomitant]
     Active Substance: CLOPREDNOL
     Route: 065
  8. ROACTEMRA [Suspect]
     Active Substance: TOCILIZUMAB
     Indication: RHEUMATOID ARTHRITIS
     Dosage: DAILY DOSE: 162 MG MILLGRAM(S) EVERY WEEKS
     Route: 058
     Dates: start: 20140801

REACTIONS (16)
  - Vasoconstriction [Not Recovered/Not Resolved]
  - Syncope [Recovered/Resolved]
  - Drug effect decreased [Unknown]
  - Respiratory tract oedema [Not Recovered/Not Resolved]
  - Hypertension [Not Recovered/Not Resolved]
  - Rheumatoid arthritis [Not Recovered/Not Resolved]
  - Spinal pain [Not Recovered/Not Resolved]
  - Deafness unilateral [Not Recovered/Not Resolved]
  - Confusional state [Recovered/Resolved]
  - Rash [Not Recovered/Not Resolved]
  - Back pain [Unknown]
  - Musculoskeletal pain [Not Recovered/Not Resolved]
  - Peripheral swelling [Recovered/Resolved]
  - Alopecia [Not Recovered/Not Resolved]
  - Balance disorder [Not Recovered/Not Resolved]
  - Blood iron increased [Not Recovered/Not Resolved]

NARRATIVE: CASE EVENT DATE: 2009
